FAERS Safety Report 5868079-8 (Version None)
Quarter: 2008Q3

REPORT INFORMATION
  Report Type: 
  Country: None (occurrence: None)
  Receive Date: 20080902
  Receipt Date: 20080408
  Transmission Date: 20090109
  Serious: No
  Sender: FDA-Public Use
  Company Number: US-ABBOTT-08P-163-0446008-00

PATIENT
  Sex: Male
  Weight: 88.53 kg

DRUGS (9)
  1. DEPAKOTE ER [Suspect]
     Indication: BIPOLAR DISORDER
     Route: 048
  2. DEPAKOTE ER [Suspect]
     Route: 048
  3. DEPAKOTE ER [Suspect]
     Route: 048
  4. DEPAKOTE ER [Suspect]
     Route: 048
     Dates: start: 20080207, end: 20080207
  5. DEPAKOTE ER [Suspect]
  6. DEPAKOTE ER [Suspect]
  7. ATORVASTATIN CALCIUM [Concomitant]
     Indication: DRUG USE FOR UNKNOWN INDICATION
  8. OMEGA 3 FATTY ACIDS/FISH OIL [Concomitant]
     Indication: DRUG USE FOR UNKNOWN INDICATION
  9. LITHIUM CARBONATE [Concomitant]
     Indication: DRUG USE FOR UNKNOWN INDICATION

REACTIONS (2)
  - ANTICONVULSANT DRUG LEVEL BELOW THERAPEUTIC [None]
  - MANIA [None]
